FAERS Safety Report 17429709 (Version 1)
Quarter: 2020Q1

REPORT INFORMATION
  Report Type: Spontaneous
  Country: US (occurrence: US)
  Receive Date: 20200203
  Receipt Date: 20200203
  Transmission Date: 20200409
  Serious: No
  Sender: FDA-Public Use
  Company Number: None

PATIENT
  Sex: Male
  Weight: 72.57 kg

DRUGS (1)
  1. POTASSIUM CL ER 10MCG TABS [Suspect]
     Active Substance: POTASSIUM CHLORIDE
     Indication: PERIPHERAL SWELLING
     Dosage: ?          QUANTITY:1 PER DAY;?
     Route: 048
     Dates: start: 20191228, end: 20191230

REACTIONS (1)
  - Dyskinesia [None]
